FAERS Safety Report 4709199-0 (Version None)
Quarter: 2005Q3

REPORT INFORMATION
  Report Type: 
  Country: None (occurrence: None)
  Receive Date: 20050705
  Receipt Date: 20050621
  Transmission Date: 20060218
  Serious: Yes (Other)
  Sender: FDA-Public Use
  Company Number: 2004226611US

PATIENT
  Age: 36 Year
  Sex: Female
  Weight: 77.1 kg

DRUGS (8)
  1. BEXTRA [Suspect]
     Indication: TENDONITIS
     Dosage: 10 MG (10 MG, 1 IN 1 D), UNKNOWN
     Route: 065
     Dates: start: 20040223, end: 20040401
  2. XANAX [Suspect]
     Indication: ANXIETY
     Dosage: UNKNOWN (0.5 NG, AS NECESSARY); ORAL
     Route: 048
     Dates: start: 20040101, end: 20040512
  3. CELEBREX [Suspect]
     Indication: TENDONITIS
     Dosage: UNK (100 MG), ORAL
     Route: 048
     Dates: start: 20040419
  4. MOTRIN [Suspect]
     Indication: TENDONITIS
     Dosage: UNKNORN (AS NECESSARY); ORAL
     Route: 048
     Dates: start: 20040101, end: 20040501
  5. IBUPROFEN [Suspect]
     Indication: TENDONITIS
     Dosage: UNKNOWN (AS NECESSARY); ORAL
     Route: 048
     Dates: start: 20040101, end: 20040501
  6. CELEXA [Concomitant]
  7. CODEINE PHOSPHATE AND ACETAMINOPHEN [Concomitant]
  8. HYDROCHLOROTHIAZIDE [Concomitant]

REACTIONS (54)
  - ABASIA [None]
  - ACCIDENT AT WORK [None]
  - ACTIVITIES OF DAILY LIVING IMPAIRED [None]
  - AGGRESSION [None]
  - ANGER [None]
  - ANHEDONIA [None]
  - ANXIETY [None]
  - BACK INJURY [None]
  - CEREBROVASCULAR ACCIDENT [None]
  - CHEST PAIN [None]
  - CLUMSINESS [None]
  - COLD SWEAT [None]
  - COMA [None]
  - CONVULSION [None]
  - DEPRESSION [None]
  - DIARRHOEA [None]
  - DISORIENTATION [None]
  - DISTURBANCE IN ATTENTION [None]
  - DIZZINESS [None]
  - DRUG WITHDRAWAL SYNDROME [None]
  - DYSPHEMIA [None]
  - EYE DISORDER [None]
  - FALL [None]
  - FATIGUE [None]
  - FEELING ABNORMAL [None]
  - HALLUCINATION, AUDITORY [None]
  - HYPERHIDROSIS [None]
  - HYPERKERATOSIS [None]
  - HYPOGLYCAEMIA [None]
  - IMMOBILE [None]
  - IMPAIRED DRIVING ABILITY [None]
  - IMPAIRED SELF-CARE [None]
  - INSOMNIA [None]
  - JOINT INJURY [None]
  - LOSS OF CONSCIOUSNESS [None]
  - MIGRAINE [None]
  - MOOD SWINGS [None]
  - NAUSEA [None]
  - NECK INJURY [None]
  - NERVOUSNESS [None]
  - ORAL INTAKE REDUCED [None]
  - PARANOIA [None]
  - POST-TRAUMATIC STRESS DISORDER [None]
  - RETCHING [None]
  - SCAR [None]
  - SKIN DISCOLOURATION [None]
  - SKIN EXFOLIATION [None]
  - SPEECH DISORDER [None]
  - TENDONITIS [None]
  - TINNITUS [None]
  - TREMOR [None]
  - VOMITING [None]
  - WEIGHT DECREASED [None]
  - WEIGHT INCREASED [None]
